FAERS Safety Report 5572193-4 (Version None)
Quarter: 2007Q4

REPORT INFORMATION
  Report Type: 
  Country: None (occurrence: None)
  Receive Date: 20071221
  Receipt Date: 20071212
  Transmission Date: 20080405
  Serious: Yes (Other)
  Sender: FDA-Public Use
  Company Number: JP-MERCK-0712USA05320

PATIENT
  Age: 39 Year
  Sex: Female

DRUGS (6)
  1. SINGULAIR [Suspect]
     Indication: ASTHMA
     Route: 048
  2. UNIPHYL [Suspect]
     Indication: ASTHMA
     Route: 048
  3. METHYLPREDNISOLONE [Suspect]
     Route: 065
  4. PREDNISOLONE [Suspect]
     Route: 065
  5. THEOLONG [Concomitant]
     Indication: ASTHMA
     Route: 048
     Dates: start: 20020101
  6. FLUTICASONE PROPIONATE [Concomitant]
     Indication: ASTHMA
     Dates: start: 20020101

REACTIONS (3)
  - BLOOD CREATINE PHOSPHOKINASE INCREASED [None]
  - MYOPATHY [None]
  - POLYMYOSITIS [None]
